FAERS Safety Report 4819517-0 (Version None)
Quarter: 2005Q4

REPORT INFORMATION
  Report Type: 
  Country: None (occurrence: None)
  Receive Date: 20051102
  Receipt Date: 20051102
  Transmission Date: 20060501
  Serious: No
  Sender: FDA-Public Use
  Company Number: None

PATIENT
  Age: 67 Year
  Sex: Female
  Weight: 61 kg

DRUGS (4)
  1. IRESSA [Suspect]
     Dosage: 250 MG PO QD [SINCE]
     Route: 048
  2. FASLODEX [Suspect]
     Dosage: 250 MG Q MONTH
  3. CELEXA [Concomitant]
  4. MULTI-VITAMIN [Concomitant]

REACTIONS (2)
  - FALL [None]
  - PELVIC FRACTURE [None]
